FAERS Safety Report 20170505 (Version 3)
Quarter: 2024Q4

REPORT INFORMATION
  Report Type: Spontaneous
  Country: JP (occurrence: JP)
  Receive Date: 20211210
  Receipt Date: 20241216
  Transmission Date: 20250114
  Serious: Yes (Hospitalization, Other)
  Sender: OTSUKA
  Company Number: JP-OTSUKA-2021_042285

PATIENT
  Age: 8 Decade
  Sex: Male
  Weight: 47.5 kg

DRUGS (21)
  1. SAMSCA [Suspect]
     Active Substance: TOLVAPTAN
     Indication: Cardiac failure chronic
     Dosage: 15MG/DAY
     Route: 048
  2. SAMSCA [Suspect]
     Active Substance: TOLVAPTAN
     Dosage: 7.5MG/DAY
     Route: 048
  3. PIMOBENDAN [Suspect]
     Active Substance: PIMOBENDAN
     Indication: Cardiac failure chronic
     Dosage: 5MG/DAY
     Route: 048
  4. BISOPROLOL FUMARATE [Suspect]
     Active Substance: BISOPROLOL FUMARATE
     Indication: Cardiac failure chronic
     Dosage: 5MG/DAY
     Route: 048
  5. AZOSEMIDE [Suspect]
     Active Substance: AZOSEMIDE
     Indication: Cardiac failure chronic
     Dosage: 45MG/DAY
     Route: 048
  6. AZOSEMIDE [Suspect]
     Active Substance: AZOSEMIDE
     Dosage: 30MG/DAY
     Route: 048
  7. TORSEMIDE [Suspect]
     Active Substance: TORSEMIDE
     Indication: Cardiac failure chronic
     Dosage: 4MG/DAY
     Route: 048
  8. SPIRONOLACTONE [Suspect]
     Active Substance: SPIRONOLACTONE
     Indication: Cardiac failure chronic
     Dosage: 25MG/DAY
     Route: 048
  9. SPIRONOLACTONE [Suspect]
     Active Substance: SPIRONOLACTONE
     Dosage: 12.5MG/DAY
     Route: 048
  10. DAPAGLIFLOZIN PROPANEDIOL [Suspect]
     Active Substance: DAPAGLIFLOZIN PROPANEDIOL
     Indication: Cardiac failure chronic
     Dosage: 10MG/DAY
     Route: 048
  11. ENTRESTO [Suspect]
     Active Substance: SACUBITRIL\VALSARTAN
     Indication: Cardiac failure chronic
     Dosage: 200MG/DAY
     Route: 048
  12. ENTRESTO [Suspect]
     Active Substance: SACUBITRIL\VALSARTAN
     Dosage: 50 MG, BID
     Route: 048
  13. ENTRESTO [Suspect]
     Active Substance: SACUBITRIL\VALSARTAN
     Dosage: 100MG/DAY
     Route: 048
  14. CARVEDILOL [Concomitant]
     Active Substance: CARVEDILOL
     Indication: Product used for unknown indication
     Dosage: 7.5MG/DAY
     Route: 048
  15. CARVEDILOL [Concomitant]
     Active Substance: CARVEDILOL
     Dosage: 10MG/DAY
     Route: 048
  16. ENALAPRIL MALEATE [Concomitant]
     Active Substance: ENALAPRIL MALEATE
     Indication: Product used for unknown indication
     Dosage: 5MG/DAY
     Route: 048
  17. ASPIRIN [Concomitant]
     Active Substance: ASPIRIN
     Indication: Product used for unknown indication
     Dosage: 100MG/DAY
     Route: 048
  18. LINAGLIPTIN [Concomitant]
     Active Substance: LINAGLIPTIN
     Indication: Product used for unknown indication
     Dosage: 5MG/DAY
     Route: 048
  19. FEBUXOSTAT [Concomitant]
     Active Substance: FEBUXOSTAT
     Indication: Product used for unknown indication
     Dosage: 20MG/DAY
     Route: 048
  20. LEVOTHYROXINE SODIUM [Concomitant]
     Active Substance: LEVOTHYROXINE SODIUM
     Indication: Product used for unknown indication
     Dosage: 50MCG/DAY
     Route: 048
  21. FUROSEMIDE [Concomitant]
     Active Substance: FUROSEMIDE
     Indication: Product used for unknown indication
     Dosage: 20MG/DAY
     Route: 042

REACTIONS (15)
  - Cardiac failure chronic [Recovered/Resolved]
  - Low cardiac output syndrome [Unknown]
  - Depressed level of consciousness [Unknown]
  - Pulmonary congestion [Unknown]
  - Cardiac failure [Recovering/Resolving]
  - Dyspnoea at rest [Unknown]
  - Volume blood decreased [Unknown]
  - Hypovolaemia [Unknown]
  - Renal impairment [Recovering/Resolving]
  - Renal vessel disorder [Unknown]
  - Dyspnoea exertional [Recovering/Resolving]
  - Oedema peripheral [Recovering/Resolving]
  - Hepatic enzyme increased [Unknown]
  - Malaise [Unknown]
  - Decreased appetite [Unknown]
